FAERS Safety Report 9165429 (Version 1)
Quarter: 2013Q1

REPORT INFORMATION
  Report Type: Spontaneous
  Country: US (occurrence: None)
  Receive Date: 20130314
  Receipt Date: 20130314
  Transmission Date: 20140127
  Serious: No
  Sender: FDA-Public Use
  Company Number: None

PATIENT
  Sex: 0

DRUGS (1)
  1. ELMIRON [Suspect]

REACTIONS (6)
  - Weight decreased [None]
  - Malaise [None]
  - Pyrexia [None]
  - Nausea [None]
  - Vomiting [None]
  - Withdrawal syndrome [None]
